FAERS Safety Report 8017892 (Version 3)
Quarter: 2013Q3

REPORT INFORMATION
  Report Type: Spontaneous
  Country: US (occurrence: US)
  Receive Date: 20110701
  Receipt Date: 20130723
  Transmission Date: 20140515
  Serious: Yes (Hospitalization)
  Sender: FDA-Public Use
  Company Number: US-BIOGENIDEC-2011BI023328

PATIENT
  Age: 63 Year
  Sex: Female

DRUGS (3)
  1. TYSABRI [Suspect]
     Indication: MULTIPLE SCLEROSIS
     Route: 042
     Dates: start: 20101228, end: 20110602
  2. TECFIDERA [Concomitant]
     Route: 048
     Dates: start: 20130703, end: 20130709
  3. TECFIDERA [Concomitant]
     Route: 048
     Dates: start: 20130710

REACTIONS (2)
  - Myocardial infarction [Recovered/Resolved]
  - Multiple allergies [Not Recovered/Not Resolved]
